FAERS Safety Report 10917607 (Version 1)
Quarter: 2015Q1

REPORT INFORMATION
  Report Type: Spontaneous
  Country: SE (occurrence: None)
  Receive Date: 20150311
  Receipt Date: 20150311
  Transmission Date: 20150721
  Serious: Yes (Other)
  Sender: FDA-Public Use
  Company Number: 2015COV00052

PATIENT
  Sex: Female

DRUGS (4)
  1. PLAQUENIL [Suspect]
     Active Substance: HYDROXYCHLOROQUINE SULFATE
     Indication: GLOMERULONEPHRITIS
     Dates: start: 20140716
  2. PLAQUENIL [Suspect]
     Active Substance: HYDROXYCHLOROQUINE SULFATE
     Indication: SYSTEMIC LUPUS ERYTHEMATOSUS
     Dates: start: 20140716
  3. EUTHYROX [Suspect]
     Active Substance: LEVOTHYROXINE SODIUM
     Dosage: 0.5 DOSAGE UNITS, 1X/DAY
     Dates: start: 2014
  4. ASPIRIN CARDIO (ACETYLSALICYLIC ACID) [Suspect]
     Active Substance: ASPIRIN
     Dates: end: 201409

REACTIONS (6)
  - Placenta praevia [None]
  - Premature delivery [None]
  - Caesarean section [None]
  - Metrorrhagia [None]
  - Placental infarction [None]
  - Exposure during pregnancy [None]

NARRATIVE: CASE EVENT DATE: 20141019
